FAERS Safety Report 23504684 (Version 1)
Quarter: 2024Q1

REPORT INFORMATION
  Report Type: Spontaneous
  Country: JP (occurrence: JP)
  Receive Date: 20240209
  Receipt Date: 20240209
  Transmission Date: 20240410
  Serious: Yes (Death, Other)
  Sender: FDA-Public Use
  Company Number: JP-SANDOZ-SDZ2024JP012550

PATIENT
  Age: 13 Year
  Sex: Male

DRUGS (3)
  1. ALKERAN [Suspect]
     Active Substance: MELPHALAN
     Indication: Acute lymphocytic leukaemia
     Dosage: 70 MG/M2, QD
     Route: 065
  2. NELARABINE [Suspect]
     Active Substance: NELARABINE
     Indication: Acute lymphocytic leukaemia
     Dosage: 650 MG/M2, QD
     Route: 065
  3. FLUDARABINE PHOSPHATE [Concomitant]
     Active Substance: FLUDARABINE PHOSPHATE
     Indication: Acute lymphocytic leukaemia
     Dosage: 25 MG/M2, QD
     Route: 065

REACTIONS (5)
  - Disseminated intravascular coagulation [Fatal]
  - Infection [Fatal]
  - Neuropathy peripheral [Unknown]
  - Febrile neutropenia [Unknown]
  - Myelitis transverse [Unknown]
